FAERS Safety Report 8798639 (Version 1)
Quarter: 2012Q4

REPORT INFORMATION
  Report Type: Spontaneous
  Country: US (occurrence: None)
  Receive Date: 20120917
  Receipt Date: 20120917
  Transmission Date: 20130627
  Serious: No
  Sender: FDA-Public Use
  Company Number: None

PATIENT
  Age: 59 Year
  Sex: Female
  Weight: 77.11 kg

DRUGS (1)
  1. CLARITHROMYCIN [Suspect]
     Indication: CHRONIC SINUSITIS
     Route: 048
     Dates: start: 20120914, end: 20120916

REACTIONS (9)
  - Swelling face [None]
  - Pharyngeal oedema [None]
  - Dysphonia [None]
  - Sinus operation [None]
  - Erythema [None]
  - Pharyngeal erythema [None]
  - Eye pruritus [None]
  - Ocular hyperaemia [None]
  - Drug effect incomplete [None]
